FAERS Safety Report 5963847-6 (Version None)
Quarter: 2008Q4

REPORT INFORMATION
  Report Type: 
  Country: None (occurrence: None)
  Receive Date: 20081124
  Receipt Date: 20081112
  Transmission Date: 20090506
  Serious: Yes (Life-Threatening, Hospitalization)
  Sender: FDA-Public Use
  Company Number: DE-BRISTOL-MYERS SQUIBB COMPANY-14404396

PATIENT
  Age: 51 Year
  Sex: Female

DRUGS (3)
  1. CETUXIMAB [Suspect]
     Indication: NON-SMALL CELL LUNG CANCER
     Dosage: STARTED ON 18-JUL-2008 REC'D 382.5 MG
     Route: 042
     Dates: start: 20081106, end: 20081106
  2. DOCETAXEL [Suspect]
     Indication: NON-SMALL CELL LUNG CANCER
     Dosage: STARTED 28-AUG-2008 REC'D 110 MG.
     Route: 042
     Dates: start: 20080919, end: 20080919
  3. GEMCITABINE HCL [Suspect]
     Indication: NON-SMALL CELL LUNG CANCER
     Dosage: STARTED ON 17-JUL-1008 REC'D 1558 MG.
     Route: 042
     Dates: start: 20080814, end: 20080814

REACTIONS (3)
  - ASCITES [None]
  - ILEUS PARALYTIC [None]
  - PERICARDIAL EFFUSION [None]
